FAERS Safety Report 12569132 (Version 1)
Quarter: 2016Q3

REPORT INFORMATION
  Report Type: Report from Study
  Country: US (occurrence: US)
  Receive Date: 20160719
  Receipt Date: 20160719
  Transmission Date: 20161109
  Serious: Yes (Other)
  Sender: FDA-Public Use
  Company Number: US-JNJFOC-20160626501

PATIENT
  Sex: Male

DRUGS (13)
  1. NITROGLYCERIN. [Concomitant]
     Active Substance: NITROGLYCERIN
  2. MELOXICAM. [Concomitant]
     Active Substance: MELOXICAM
  3. ASPIRIN. [Concomitant]
     Active Substance: ASPIRIN
  4. ISOSORBIDE. [Concomitant]
     Active Substance: ISOSORBIDE
  5. METFORMIN [Concomitant]
     Active Substance: METFORMIN HYDROCHLORIDE
  6. AMLODIPINE [Concomitant]
     Active Substance: AMLODIPINE BESYLATE
  7. CARDIZEM [Concomitant]
     Active Substance: DILTIAZEM HYDROCHLORIDE
  8. VITAMIN D3 [Concomitant]
     Active Substance: CHOLECALCIFEROL
  9. DONEPEZIL. [Concomitant]
     Active Substance: DONEPEZIL
  10. MOMETASONE FUROATE. [Concomitant]
     Active Substance: MOMETASONE FUROATE
  11. IMBRUVICA [Suspect]
     Active Substance: IBRUTINIB
     Indication: CHRONIC LYMPHOCYTIC LEUKAEMIA
     Route: 048
     Dates: start: 20160616
  12. APEXICON [Concomitant]
     Active Substance: DIFLORASONE DIACETATE
  13. LYRICA [Concomitant]
     Active Substance: PREGABALIN

REACTIONS (5)
  - Catheterisation cardiac [Unknown]
  - Loss of consciousness [Unknown]
  - Diarrhoea [Unknown]
  - Asthenia [Unknown]
  - Vomiting [Unknown]

NARRATIVE: CASE EVENT DATE: 2016
